FAERS Safety Report 6612167-5 (Version None)
Quarter: 2010Q1

REPORT INFORMATION
  Report Type: 
  Country: None (occurrence: None)
  Receive Date: 20100302
  Receipt Date: 20100302
  Transmission Date: 20100710
  Serious: Yes (Life-Threatening, Other)
  Sender: FDA-Public Use
  Company Number: None

PATIENT
  Sex: Male
  Weight: 111.1313 kg

DRUGS (2)
  1. GUANFACINE HYDROCHLORIDE [Suspect]
     Indication: DISTURBANCE IN ATTENTION
     Dosage: 1 TABLET DAILY/EVENING PO
     Route: 048
     Dates: start: 20100101, end: 20100301
  2. GUANFACINE HYDROCHLORIDE [Suspect]
     Indication: SLEEP DISORDER
     Dosage: 1 TABLET DAILY/EVENING PO
     Route: 048
     Dates: start: 20100101, end: 20100301

REACTIONS (13)
  - ANXIETY [None]
  - DEPRESSION [None]
  - DYSPNOEA [None]
  - HEADACHE [None]
  - HEART RATE INCREASED [None]
  - INSOMNIA [None]
  - IRRITABILITY [None]
  - MOOD ALTERED [None]
  - NERVOUSNESS [None]
  - POOR QUALITY SLEEP [None]
  - PRODUCT SUBSTITUTION ISSUE [None]
  - PSYCHOMOTOR HYPERACTIVITY [None]
  - VISION BLURRED [None]
